FAERS Safety Report 5191305-8 (Version None)
Quarter: 2006Q4

REPORT INFORMATION
  Report Type: 
  Country: None (occurrence: None)
  Receive Date: 20061219
  Receipt Date: 20061219
  Transmission Date: 20070319
  Serious: Yes (Hospitalization)
  Sender: FDA-Public Use
  Company Number: None

PATIENT
  Age: 84 Year
  Sex: Male
  Weight: 58 kg

DRUGS (11)
  1. ASPIRIN [Suspect]
     Indication: CEREBROVASCULAR ACCIDENT PROPHYLAXIS
     Dosage: 325MG  DAILY  ORAL
     Route: 048
     Dates: start: 20040101, end: 20060814
  2. CLOPIDOGREL [Suspect]
     Indication: CEREBROVASCULAR ACCIDENT PROPHYLAXIS
     Dosage: 75MG  DAILY  ORAL
     Route: 048
     Dates: start: 20040101, end: 20060815
  3. EPOETIN ALFA [Concomitant]
  4. CYANOCOBALAMIN [Concomitant]
  5. NIASPAN [Concomitant]
  6. METOPROLOL SUCCINATE [Concomitant]
  7. FORMOTEROL FUMARATE [Concomitant]
  8. SIMVASTATIN [Concomitant]
  9. DOCUSATE NA/SENNOSIDES [Concomitant]
  10. NITROGLYCERIN [Concomitant]
  11. FERROUS SULFATE TAB [Concomitant]

REACTIONS (3)
  - GASTRIC ULCER [None]
  - HAEMATEMESIS [None]
  - THROMBOSIS [None]
